FAERS Safety Report 4316147-4 (Version None)
Quarter: 2004Q1

REPORT INFORMATION
  Report Type: 
  Country: None (occurrence: None)
  Receive Date: 20040310
  Receipt Date: 20040301
  Transmission Date: 20041129
  Serious: Yes (Death)
  Sender: FDA-Public Use
  Company Number: 2004-113438-NL

PATIENT
  Age: 77 Year
  Sex: Female

DRUGS (2)
  1. MIRTAZAPINE [Suspect]
     Indication: DEPRESSION
     Dosage: 45 MG
     Route: 048
     Dates: start: 20031018, end: 20031224
  2. METOCLOPRAMIDE [Concomitant]

REACTIONS (1)
  - INTENTIONAL OVERDOSE [None]
